FAERS Safety Report 13083342 (Version 1)
Quarter: 2017Q1

REPORT INFORMATION
  Report Type: Spontaneous
  Country: SE (occurrence: SE)
  Receive Date: 20170104
  Receipt Date: 20170104
  Transmission Date: 20170428
  Serious: Yes (Other)
  Sender: FDA-Public Use
  Company Number: SE-CIPLA LTD.-2016SE24326

PATIENT

DRUGS (2)
  1. ESCITALOPRAM [Suspect]
     Active Substance: ESCITALOPRAM OXALATE
     Dosage: UNK
     Route: 065
  2. CORSODYL 1 % [Interacting]
     Active Substance: CHLORHEXIDINE GLUCONATE
     Dosage: UNK
     Route: 065

REACTIONS (1)
  - Inhibitory drug interaction [Unknown]
